FAERS Safety Report 16418500 (Version 1)
Quarter: 2019Q2

REPORT INFORMATION
  Report Type: Report from Study
  Country: AT (occurrence: AT)
  Receive Date: 20190612
  Receipt Date: 20190612
  Transmission Date: 20190711
  Serious: Yes (Other)
  Sender: FDA-Public Use
  Company Number: AT-ROCHE-2333808

PATIENT
  Age: 59 Year
  Sex: Female
  Weight: 65 kg

DRUGS (14)
  1. ESOMEPRAZOLE. [Concomitant]
     Active Substance: ESOMEPRAZOLE MAGNESIUM
     Dosage: ONGOING = CHECKED
     Route: 065
     Dates: start: 20180719
  2. DICLOFENAC [Concomitant]
     Active Substance: DICLOFENAC
     Dosage: ONGOING = CHECKED
     Route: 065
     Dates: start: 20180816
  3. DEKRISTOLMIN [Concomitant]
     Active Substance: CHOLECALCIFEROL
     Dosage: ONGOING = CHECKED
     Route: 065
     Dates: start: 20180629
  4. LETROZOLE. [Suspect]
     Active Substance: LETROZOLE
     Indication: BREAST CANCER
     Route: 048
     Dates: start: 20181130
  5. FORTECORTIN [DEXAMETHASONE] [Concomitant]
     Active Substance: DEXAMETHASONE
     Dosage: ONGOING = CHECKED
     Route: 065
     Dates: start: 20180626
  6. DIBONDRIN [Concomitant]
     Active Substance: DIPHENHYDRAMINE HYDROCHLORIDE
     Dosage: ONGOING = CHECKED
     Route: 065
     Dates: start: 20180626
  7. PERTUZUMAB. [Suspect]
     Active Substance: PERTUZUMAB
     Indication: BREAST CANCER
     Dosage: MOST RECENT DOSE PRIOR TO THE EVENT: 17/JUL/2018
     Route: 042
     Dates: start: 20180627
  8. XGEVA [Suspect]
     Active Substance: DENOSUMAB
     Indication: BREAST CANCER
     Route: 058
     Dates: start: 20180628
  9. DAFLON [DIOSMIN;HESPERIDIN] [Concomitant]
     Dosage: ONGOING = CHECKED
     Route: 065
     Dates: start: 20190509
  10. DALACIN C [CLINDAMYCIN] [Concomitant]
     Dosage: ONGOING = CHECKED
     Route: 065
     Dates: start: 20190205
  11. TRASTUZUMAB. [Suspect]
     Active Substance: TRASTUZUMAB
     Indication: BREAST CANCER
     Dosage: MOST RECENT DOSE PRIOR TO THE EVENT: 17/JUL/2018
     Route: 041
     Dates: start: 20180627
  12. DUROTIV [Concomitant]
     Active Substance: ESOMEPRAZOLE
     Dosage: ONGOING = CHECKED
     Route: 065
     Dates: start: 20180625
  13. TAXOTERE [Suspect]
     Active Substance: DOCETAXEL
     Indication: BREAST CANCER
     Dosage: MOST RECENT DOSE 05/NOV/2018
     Route: 042
     Dates: start: 20180627
  14. ZOFRAN [Concomitant]
     Active Substance: ONDANSETRON HYDROCHLORIDE
     Dosage: ONGOING = CHECKED
     Route: 065
     Dates: start: 20180626

REACTIONS (2)
  - Diarrhoea [Recovered/Resolved]
  - Clostridial infection [Recovered/Resolved]

NARRATIVE: CASE EVENT DATE: 20190415
